FAERS Safety Report 8957530 (Version 3)
Quarter: 2013Q2

REPORT INFORMATION
  Report Type: Spontaneous
  Country: BR (occurrence: BR)
  Receive Date: 20121210
  Receipt Date: 20130530
  Transmission Date: 20140414
  Serious: Yes (Other)
  Sender: FDA-Public Use
  Company Number: BR-PFIZER INC-2012309405

PATIENT
  Age: 50 Year
  Sex: Female
  Weight: 70 kg

DRUGS (12)
  1. PRISTIQ [Suspect]
     Indication: DEPRESSION
     Dosage: 1 TABLET OF 100 MG, 1X/DAY (IN THE MORNING)
     Route: 048
     Dates: start: 2011, end: 20121206
  2. PRISTIQ [Suspect]
     Indication: STRESS
     Dosage: 1 TABLET OF 100 MG, 1X/DAY (IN THE MORNING)
     Route: 048
     Dates: end: 20130525
  3. PRISTIQ [Suspect]
     Indication: PANIC DISORDER
  4. PRISTIQ [Suspect]
     Indication: MENTAL DISORDER
  5. LAMICTAL [Concomitant]
     Indication: MENTAL DISORDER
     Dosage: 1 TABLET OF 100 MG, 1X/DAY (AT NIGHT)
     Route: 048
  6. RIVOTRIL [Concomitant]
     Indication: MENTAL DISORDER
     Dosage: 1 TABLET IN THE MORNING AND 1 TABLET AT NIGHT TWICE A DAY
     Route: 048
  7. SELOZOK [Concomitant]
     Dosage: 50 MG, 1X/DAY (IN THE MORNING)
     Route: 048
  8. PROPANOLOL [Concomitant]
     Dosage: 40 MG, 3 TABLETS DAILY
     Route: 048
  9. PROPANOLOL [Concomitant]
     Dosage: 3 TABLETS OF 40 MG DAILY
  10. AAS [Concomitant]
     Dosage: 100MG DAILY
     Route: 048
  11. GLIFAGE XR [Concomitant]
     Dosage: 500 MG, 1X/DAY (AT NIGHT)
     Route: 048
  12. CLINFAR [Concomitant]
     Dosage: UNK
     Route: 048

REACTIONS (18)
  - Suicidal ideation [Not Recovered/Not Resolved]
  - Homicidal ideation [Not Recovered/Not Resolved]
  - Aggression [Recovered/Resolved]
  - Depressed mood [Not Recovered/Not Resolved]
  - Mental impairment [Not Recovered/Not Resolved]
  - Drug effect decreased [Unknown]
  - Amnesia [Not Recovered/Not Resolved]
  - Feeling abnormal [Not Recovered/Not Resolved]
  - Crying [Not Recovered/Not Resolved]
  - Mood altered [Unknown]
  - Aphagia [Unknown]
  - Headache [Not Recovered/Not Resolved]
  - Nausea [Recovered/Resolved]
  - Off label use [Not Recovered/Not Resolved]
  - Paraesthesia [Not Recovered/Not Resolved]
  - Drooling [Not Recovered/Not Resolved]
  - Nervousness [Not Recovered/Not Resolved]
  - Feeling abnormal [Not Recovered/Not Resolved]
